FAERS Safety Report 16117132 (Version 3)
Quarter: 2019Q2

REPORT INFORMATION
  Report Type: Spontaneous
  Country: FR (occurrence: FR)
  Receive Date: 20190326
  Receipt Date: 20190409
  Transmission Date: 20190711
  Serious: Yes (Other)
  Sender: FDA-Public Use
  Company Number: FR-GLAXOSMITHKLINE-FR2019GSK052928

PATIENT
  Sex: Female
  Weight: 57 kg

DRUGS (3)
  1. LEVOTHYROX [Concomitant]
     Active Substance: LEVOTHYROXINE
     Indication: PRODUCT USED FOR UNKNOWN INDICATION
     Dosage: 25 UG, UNK
  2. SEREVENT DISKUS [Concomitant]
     Active Substance: SALMETEROL XINAFOATE
     Indication: ASTHMA
     Dosage: UNK
     Route: 055
  3. VENTOLINE [Suspect]
     Active Substance: ALBUTEROL
     Indication: ASTHMA
     Dosage: UNK UNK, PRN
     Route: 055

REACTIONS (4)
  - Respiratory distress [Recovered/Resolved]
  - Product complaint [Unknown]
  - Anxiety [Recovered/Resolved]
  - Dyspnoea [Recovered/Resolved]

NARRATIVE: CASE EVENT DATE: 2019
